FAERS Safety Report 9996480 (Version 2)
Quarter: 2014Q1

REPORT INFORMATION
  Report Type: Spontaneous
  Country: FR (occurrence: FR)
  Receive Date: 20140311
  Receipt Date: 20140321
  Transmission Date: 20141002
  Serious: Yes (Other)
  Sender: FDA-Public Use
  Company Number: FR-ASTRAZENECA-2014SE16159

PATIENT
  Age: 524 Month
  Sex: Male

DRUGS (10)
  1. INEXIUM [Suspect]
     Route: 048
     Dates: end: 20140131
  2. CORTANCYL [Concomitant]
     Route: 048
  3. BARACLUDE [Concomitant]
     Route: 048
  4. LASILIX [Concomitant]
     Route: 048
  5. OXYCONTIN [Concomitant]
     Route: 048
  6. OXYNORM [Concomitant]
     Dosage: 5 MG 4 TIMES A DAY IF NEEDED
     Route: 048
  7. IMOVANE [Concomitant]
     Dates: end: 201401
  8. PROGRAF [Concomitant]
     Route: 048
     Dates: end: 20140204
  9. ARANESP [Concomitant]
     Route: 058
     Dates: start: 201312
  10. HEPARINE SODIQUE [Concomitant]

REACTIONS (3)
  - Haemoglobin decreased [Unknown]
  - Thrombocytopenia [Not Recovered/Not Resolved]
  - White blood cell count decreased [Unknown]
